FAERS Safety Report 14172781 (Version 1)
Quarter: 2017Q4

REPORT INFORMATION
  Report Type: Spontaneous
  Country: US (occurrence: US)
  Receive Date: 20171108
  Receipt Date: 20171108
  Transmission Date: 20180321
  Serious: Yes (Hospitalization)
  Sender: FDA-Public Use
  Company Number: None

PATIENT
  Age: 42 Year
  Sex: Female
  Weight: 89.1 kg

DRUGS (3)
  1. SOLU-MEDROL [Concomitant]
     Active Substance: METHYLPREDNISOLONE SODIUM SUCCINATE
  2. BENADRYL [Concomitant]
     Active Substance: DIPHENHYDRAMINE HYDROCHLORIDE
  3. INFLECTRA [Suspect]
     Active Substance: INFLIXIMAB-DYYB
     Indication: CROHN^S DISEASE
     Route: 041
     Dates: start: 20170926, end: 20171107

REACTIONS (12)
  - Oedema [None]
  - Chest pain [None]
  - Contusion [None]
  - Vaginal disorder [None]
  - Feeling abnormal [None]
  - Hyperaesthesia [None]
  - Cheilitis [None]
  - Arthralgia [None]
  - Weight increased [None]
  - Oral mucosal eruption [None]
  - Peripheral swelling [None]
  - Chest discomfort [None]

NARRATIVE: CASE EVENT DATE: 20170926
